FAERS Safety Report 17567864 (Version 1)
Quarter: 2020Q1

REPORT INFORMATION
  Report Type: Spontaneous
  Country: DE (occurrence: DE)
  Receive Date: 20200320
  Receipt Date: 20200320
  Transmission Date: 20200409
  Serious: Yes (Other)
  Sender: FDA-Public Use
  Company Number: DE-BRACCO-2020DE01329

PATIENT
  Age: 37 Year
  Sex: Female
  Weight: 64 kg

DRUGS (1)
  1. PROHANCE [Suspect]
     Active Substance: GADOTERIDOL
     Indication: SCAN WITH CONTRAST
     Dosage: 14 ML, SINGLE
     Route: 042
     Dates: start: 20191101, end: 20191101

REACTIONS (11)
  - Muscle twitching [Not Recovered/Not Resolved]
  - Visual impairment [Not Recovered/Not Resolved]
  - Urticaria [Not Recovered/Not Resolved]
  - Amenorrhoea [Not Recovered/Not Resolved]
  - Impaired work ability [Unknown]
  - Pain [Not Recovered/Not Resolved]
  - Sensory disturbance [Not Recovered/Not Resolved]
  - Sleep disorder [Not Recovered/Not Resolved]
  - Alopecia [Not Recovered/Not Resolved]
  - Dysphagia [Not Recovered/Not Resolved]
  - Dry skin [Not Recovered/Not Resolved]

NARRATIVE: CASE EVENT DATE: 20200101
